FAERS Safety Report 11045219 (Version 1)
Quarter: 2015Q2

REPORT INFORMATION
  Report Type: Spontaneous
  Country: FI (occurrence: FI)
  Receive Date: 20150417
  Receipt Date: 20150417
  Transmission Date: 20150821
  Serious: Yes (Hospitalization, Other)
  Sender: FDA-Public Use
  Company Number: FI-WATSON-2015-07510

PATIENT
  Age: 26 Year
  Sex: Female

DRUGS (1)
  1. SODIUM VALPROATE (UNKNOWN) [Suspect]
     Active Substance: VALPROATE SODIUM
     Indication: PARTIAL SEIZURES
     Dosage: UP TO 1500 MG/DAY
     Route: 065

REACTIONS (3)
  - Liver transplant [Recovered/Resolved]
  - Pancreatitis [Not Recovered/Not Resolved]
  - Acute hepatic failure [Recovered/Resolved]
